FAERS Safety Report 13022403 (Version 1)
Quarter: 2016Q4

REPORT INFORMATION
  Report Type: Spontaneous
  Country: US (occurrence: US)
  Receive Date: 20161213
  Receipt Date: 20161213
  Transmission Date: 20170207
  Serious: Yes (Death)
  Sender: FDA-Public Use
  Company Number: US-SYNEX-T201605350

PATIENT
  Age: 8 Year
  Sex: Male

DRUGS (4)
  1. INOMAX [Suspect]
     Active Substance: NITRIC OXIDE
     Indication: PULMONARY HYPERTENSION
     Dosage: UNK
  2. MORPHINE [Concomitant]
     Active Substance: MORPHINE
     Indication: PAIN MANAGEMENT
  3. WHOLE BLOOD ACD [Concomitant]
     Indication: SICKLE CELL ANAEMIA
     Dosage: 2 TRANSFUSIONS TO REDUCE SICKLE CELL LOAD
  4. EPINEPHRINE. [Concomitant]
     Active Substance: EPINEPHRINE
     Indication: CARDIO-RESPIRATORY ARREST

REACTIONS (7)
  - Brain oedema [Fatal]
  - Drug ineffective for unapproved indication [Unknown]
  - Multiple organ dysfunction syndrome [Fatal]
  - Acute kidney injury [Fatal]
  - Acute chest syndrome [Fatal]
  - Candida pneumonia [Fatal]
  - Off label use [Unknown]
